FAERS Safety Report 5688525-2 (Version None)
Quarter: 2008Q1

REPORT INFORMATION
  Report Type: 
  Country: None (occurrence: None)
  Receive Date: 20080331
  Receipt Date: 20080327
  Transmission Date: 20080703
  Serious: Yes (Death, Life-Threatening, Hospitalization)
  Sender: FDA-Public Use
  Company Number: DE-BRISTOL-MYERS SQUIBB COMPANY-13518154

PATIENT
  Age: 73 Year
  Sex: Male
  Weight: 56 kg

DRUGS (8)
  1. ETOPOSIDE [Suspect]
     Indication: SMALL CELL LUNG CANCER STAGE UNSPECIFIED
     Route: 042
     Dates: start: 20060914
  2. CARBOPLATIN [Suspect]
     Indication: SMALL CELL LUNG CANCER STAGE UNSPECIFIED
     Route: 042
     Dates: start: 20060914
  3. DELIX [Concomitant]
  4. VIANI [Concomitant]
  5. MCP [Concomitant]
     Dates: start: 20060914, end: 20060914
  6. TAVOR [Concomitant]
     Dates: start: 20060914, end: 20060914
  7. ZOFRAN [Concomitant]
     Dates: start: 20060914, end: 20060914
  8. ZOPICLONE [Concomitant]
     Dates: start: 20060906, end: 20060914

REACTIONS (4)
  - OESOPHAGEAL STENOSIS [None]
  - PNEUMONIA [None]
  - PULMONARY OEDEMA [None]
  - VISCERAL OEDEMA [None]
